FAERS Safety Report 4853908-7 (Version None)
Quarter: 2005Q4

REPORT INFORMATION
  Report Type: 
  Country: None (occurrence: None)
  Receive Date: 20051214
  Receipt Date: 20050929
  Transmission Date: 20060501
  Serious: Yes (Hospitalization, Disabling)
  Sender: FDA-Public Use
  Company Number: US-MERCK-0510USA00202

PATIENT
  Age: 57 Year
  Sex: Male
  Weight: 131 kg

DRUGS (10)
  1. VIOXX [Suspect]
     Indication: OSTEOARTHRITIS
     Route: 048
     Dates: start: 20030401, end: 20030911
  2. LONOX [Concomitant]
     Route: 065
  3. INDERAL [Concomitant]
     Route: 065
  4. LISINOPRIL [Concomitant]
     Route: 065
  5. AZMACORT [Concomitant]
     Route: 065
  6. ADVIL [Concomitant]
     Route: 065
  7. PREDNISONE [Concomitant]
     Route: 065
  8. SEREVENT [Concomitant]
     Route: 065
  9. PROPRANOLOL HYDROCHLORIDE [Concomitant]
     Route: 065
  10. ALBUTEROL [Concomitant]
     Route: 065

REACTIONS (8)
  - ANXIETY DISORDER [None]
  - CHEST PAIN [None]
  - DEPRESSION [None]
  - HAEMORRHAGE [None]
  - INTESTINAL PERFORATION [None]
  - MULTI-ORGAN FAILURE [None]
  - PAIN [None]
  - RENAL FAILURE [None]
